FAERS Safety Report 4418374-4 (Version None)
Quarter: 2004Q3

REPORT INFORMATION
  Report Type: 
  Country: None (occurrence: None)
  Receive Date: 20040809
  Receipt Date: 20040407
  Transmission Date: 20050211
  Serious: No
  Sender: FDA-Public Use
  Company Number: US-GLAXOSMITHKLINE-A0506232A

PATIENT
  Sex: Female

DRUGS (3)
  1. PAXIL CR [Suspect]
     Indication: DEPRESSION
     Dosage: 25MG PER DAY
     Route: 048
  2. LIPITOR [Concomitant]
  3. CELEBREX [Concomitant]

REACTIONS (3)
  - AGITATION [None]
  - DEPRESSION [None]
  - DRUG INEFFECTIVE [None]
